FAERS Safety Report 9801975 (Version 1)
Quarter: 2014Q1

REPORT INFORMATION
  Report Type: Spontaneous
  Country: GB (occurrence: GB)
  Receive Date: 20140107
  Receipt Date: 20140107
  Transmission Date: 20141002
  Serious: Yes (Other)
  Sender: FDA-Public Use
  Company Number: PHHY2014GB000766

PATIENT
  Sex: 0

DRUGS (1)
  1. SERTRALINE [Suspect]
     Dosage: MATERNAL DOSE: 50 MG
     Route: 064
     Dates: start: 20010101

REACTIONS (2)
  - Foetal placental thrombosis [Unknown]
  - Foetal exposure during pregnancy [Unknown]
